FAERS Safety Report 5426731-2 (Version None)
Quarter: 2007Q3

REPORT INFORMATION
  Report Type: 
  Country: None (occurrence: None)
  Receive Date: 20070827
  Receipt Date: 20070815
  Transmission Date: 20080115
  Serious: Yes (Other)
  Sender: FDA-Public Use
  Company Number: US-PFIZER INC-2007057429

PATIENT
  Sex: Female
  Weight: 78.5 kg

DRUGS (9)
  1. SUTENT [Suspect]
     Indication: RENAL CELL CARCINOMA STAGE UNSPECIFIED
     Route: 048
  2. DIOVAN [Concomitant]
  3. BENADRYL [Concomitant]
  4. LIPITOR [Concomitant]
  5. LOPRESSOR [Concomitant]
  6. LASIX [Concomitant]
  7. MAG-OX [Concomitant]
  8. COUMADIN [Concomitant]
  9. CLONIDINE [Concomitant]

REACTIONS (1)
  - CONFUSIONAL STATE [None]
